FAERS Safety Report 12781430 (Version 1)
Quarter: 2016Q3

REPORT INFORMATION
  Report Type: Spontaneous
  Country: US (occurrence: US)
  Receive Date: 20160926
  Receipt Date: 20160926
  Transmission Date: 20161109
  Serious: No
  Sender: FDA-Public Use
  Company Number: US-PFIZER INC-2016439906

PATIENT
  Sex: Male

DRUGS (7)
  1. METHOTREXATE SODIUM. [Suspect]
     Active Substance: METHOTREXATE SODIUM
     Dosage: UNK (5 CYCLES)
     Dates: start: 20130622, end: 20131103
  2. VINCRISTINE SULFATE. [Suspect]
     Active Substance: VINCRISTINE SULFATE
     Dosage: UNK (5 CYCLES)
     Dates: start: 20130622, end: 20131103
  3. PEGASPARGASE [Suspect]
     Active Substance: PEGASPARGASE
     Dosage: 5 DF, UNK, (RECEIVED 5 DOSES)
  4. DOXORUBICIN HCL [Suspect]
     Active Substance: DOXORUBICIN HYDROCHLORIDE
     Dosage: UNK (5 CYLCLES)
     Dates: start: 20130622, end: 20131103
  5. CYTARABINE. [Suspect]
     Active Substance: CYTARABINE
     Dosage: UNK (5 CYCLES)
     Dates: start: 20130622, end: 20131103
  6. CYCLOPHOSPHAMIDE. [Suspect]
     Active Substance: CYCLOPHOSPHAMIDE
     Dosage: UNK, CYCLIC (5 CYCLES)
     Dates: start: 20130622, end: 20131103
  7. DEXAMETHASONE. [Suspect]
     Active Substance: DEXAMETHASONE
     Dosage: UNK (5 CYLCES)
     Dates: start: 20130622, end: 20131103

REACTIONS (2)
  - Transaminases increased [Unknown]
  - Molluscum contagiosum [Unknown]
